FAERS Safety Report 16113440 (Version 4)
Quarter: 2020Q1

REPORT INFORMATION
  Report Type: Spontaneous
  Country: US (occurrence: US)
  Receive Date: 20190325
  Receipt Date: 20200311
  Transmission Date: 20200409
  Serious: Yes (Other)
  Sender: FDA-Public Use
  Company Number: US-PFIZER INC-2019121807

PATIENT
  Age: 65 Year
  Sex: Female
  Weight: 76.2 kg

DRUGS (2)
  1. XELJANZ XR [Suspect]
     Active Substance: TOFACITINIB CITRATE
     Indication: RHEUMATOID ARTHRITIS
     Dosage: 11 MG, 1X/DAY
     Route: 048
  2. BABY ASPIRIN [Concomitant]
     Active Substance: ASPIRIN
     Dosage: UNK

REACTIONS (6)
  - Idiopathic pulmonary fibrosis [Not Recovered/Not Resolved]
  - Swelling [Unknown]
  - Pain [Unknown]
  - Mobility decreased [Unknown]
  - Dyspnoea [Not Recovered/Not Resolved]
  - Nasopharyngitis [Unknown]

NARRATIVE: CASE EVENT DATE: 2015
